FAERS Safety Report 16385164 (Version 1)
Quarter: 2019Q2

REPORT INFORMATION
  Report Type: Spontaneous
  Country: BR (occurrence: BR)
  Receive Date: 20190603
  Receipt Date: 20190603
  Transmission Date: 20190711
  Serious: Yes (Disabling, Other)
  Sender: FDA-Public Use
  Company Number: BR-009507513-1905BRA012304

PATIENT
  Sex: Male

DRUGS (6)
  1. VONAU [Concomitant]
     Active Substance: ONDANSETRON HYDROCHLORIDE
     Indication: NAUSEA
  2. PERILLA ALCOHOL [Concomitant]
  3. ASCORBIC ACID. [Concomitant]
     Active Substance: ASCORBIC ACID
  4. TEMODAL [Suspect]
     Active Substance: TEMOZOLOMIDE
     Indication: GLIOMA
     Dosage: 380 OR 390 MILLIGRAM
     Route: 048
     Dates: start: 2013
  5. DECADRON [Concomitant]
     Active Substance: DEXAMETHASONE
  6. VITAMIN D (UNSPECIFIED) [Concomitant]
     Active Substance: VITAMIN D NOS

REACTIONS (9)
  - Walking disability [Recovered/Resolved with Sequelae]
  - Swelling [Unknown]
  - Respiratory disorder [Recovered/Resolved with Sequelae]
  - Muscle spasms [Unknown]
  - Musculoskeletal stiffness [Unknown]
  - Motor dysfunction [Recovered/Resolved with Sequelae]
  - Thrombosis [Unknown]
  - Malignant neoplasm progression [Unknown]
  - Physical disability [Recovered/Resolved with Sequelae]

NARRATIVE: CASE EVENT DATE: 2017
